FAERS Safety Report 5057520-9 (Version None)
Quarter: 2006Q3

REPORT INFORMATION
  Report Type: 
  Country: None (occurrence: None)
  Receive Date: 20060721
  Receipt Date: 20051102
  Transmission Date: 20061208
  Serious: Yes (Other)
  Sender: FDA-Public Use
  Company Number: US-GLAXOSMITHKLINE-A0580657A

PATIENT
  Age: 49 Year
  Sex: Female

DRUGS (6)
  1. AVANDIA [Suspect]
     Dosage: 8MG PER DAY
     Route: 048
  2. NOVOLOG [Concomitant]
  3. METFORMIN [Concomitant]
  4. DOXEPIN [Concomitant]
  5. LITHIUM CARBONATE [Concomitant]
  6. LISINOPRIL [Concomitant]

REACTIONS (1)
  - HYPOGLYCAEMIA [None]
